FAERS Safety Report 9432836 (Version 1)
Quarter: 2013Q3

REPORT INFORMATION
  Report Type: Spontaneous
  Country: IT (occurrence: None)
  Receive Date: 20130729
  Receipt Date: 20130729
  Transmission Date: 20140515
  Serious: Yes (Other)
  Sender: FDA-Public Use
  Company Number: FK201302731

PATIENT
  Age: 34 Year
  Sex: Male

DRUGS (4)
  1. IFOSFAMIDE [Suspect]
     Indication: TESTICULAR GERM CELL CANCER
     Dosage: 1500MG/M2, ON DAYS 1-5
  2. PACLITAXEL [Suspect]
     Indication: TESTICULAR GERM CELL CANCER
     Dosage: 175 MG/M2, ON DAY 1
  3. ETOPOSIDE [Suspect]
     Dosage: 300MG/M2, ON DAYS 1-5
  4. CARBOPLATIN [Suspect]
     Dosage: 250 MG/M2 ON DAYS 1-5

REACTIONS (11)
  - Febrile neutropenia [None]
  - Mucosal inflammation [None]
  - Gastrointestinal toxicity [None]
  - Haematotoxicity [None]
  - Thrombocytopenia [None]
  - Vomiting [None]
  - Nausea [None]
  - Testicular germ cell cancer [None]
  - Malignant neoplasm progression [None]
  - Lung disorder [None]
  - Stem cell transplant [None]
